FAERS Safety Report 6162033-7 (Version None)
Quarter: 2009Q2

REPORT INFORMATION
  Report Type: 
  Country: None (occurrence: None)
  Receive Date: 20090417
  Receipt Date: 20090417
  Transmission Date: 20091009
  Serious: Yes (Hospitalization)
  Sender: FDA-Public Use
  Company Number: None

PATIENT
  Age: 67 Year
  Sex: Male
  Weight: 73 kg

DRUGS (2)
  1. DOCETAXEL [Suspect]
     Indication: PANCREATIC CARCINOMA
     Dosage: 76MG DAYS 1, 8- -28D- IV
     Route: 042
     Dates: start: 20081215, end: 20090408
  2. GEMCITABINE HCL [Concomitant]

REACTIONS (1)
  - PNEUMONIA [None]
